FAERS Safety Report 13289670 (Version 1)
Quarter: 2017Q1

REPORT INFORMATION
  Report Type: Spontaneous
  Country: US (occurrence: US)
  Receive Date: 20170303
  Receipt Date: 20170303
  Transmission Date: 20170428
  Serious: No
  Sender: FDA-Public Use
  Company Number: US-TEVA-743618ACC

PATIENT
  Age: 56 Year
  Sex: Female

DRUGS (2)
  1. ALBUTEROL. [Concomitant]
     Active Substance: ALBUTEROL
  2. COPAXONE [Suspect]
     Active Substance: GLATIRAMER ACETATE
     Indication: MULTIPLE SCLEROSIS
     Route: 058
     Dates: start: 201506

REACTIONS (4)
  - Gait disturbance [Unknown]
  - Cognitive disorder [Unknown]
  - Fall [Unknown]
  - Somnolence [Unknown]

NARRATIVE: CASE EVENT DATE: 201612
